FAERS Safety Report 10047996 (Version 2)
Quarter: 2014Q2

REPORT INFORMATION
  Report Type: Spontaneous
  Country: CH (occurrence: CH)
  Receive Date: 20140331
  Receipt Date: 20140508
  Transmission Date: 20141212
  Serious: Yes (Death)
  Sender: FDA-Public Use
  Company Number: CH-BAXTER-2014BAX015953

PATIENT
  Sex: Female
  Weight: 55.6 kg

DRUGS (17)
  1. PHYSIONEAL 35 1.36% [Suspect]
     Indication: HYPERTENSION
     Route: 033
     Dates: start: 2013, end: 2013
  2. PHYSIONEAL 35 1.36% [Suspect]
     Indication: PERITONEAL DIALYSIS
  3. EXTRANEAL [Suspect]
     Indication: HYPERTENSION
     Route: 033
     Dates: start: 2013, end: 2013
  4. EXTRANEAL [Suspect]
     Indication: PERITONEAL DIALYSIS
  5. MARCOUMAR [Concomitant]
     Indication: PRODUCT USED FOR UNKNOWN INDICATION
  6. TORASEM MEPHA [Concomitant]
     Indication: PRODUCT USED FOR UNKNOWN INDICATION
  7. ATORVASTATIN [Concomitant]
     Indication: PRODUCT USED FOR UNKNOWN INDICATION
  8. GABAPENTIN [Concomitant]
     Indication: PRODUCT USED FOR UNKNOWN INDICATION
  9. CREON [Concomitant]
     Indication: PRODUCT USED FOR UNKNOWN INDICATION
  10. ESOMEP [Concomitant]
     Indication: PRODUCT USED FOR UNKNOWN INDICATION
  11. LAXOBERON [Concomitant]
     Indication: PRODUCT USED FOR UNKNOWN INDICATION
     Dosage: 20 DROPS
     Route: 048
  12. VI-DE 3 4500 [Concomitant]
     Indication: PRODUCT USED FOR UNKNOWN INDICATION
     Dosage: 20 DROPS
  13. VANCOCIN [Concomitant]
     Indication: PRODUCT USED FOR UNKNOWN INDICATION
     Route: 042
  14. PERENTEROL [Concomitant]
     Indication: PRODUCT USED FOR UNKNOWN INDICATION
  15. ALDACTONE [Concomitant]
     Indication: PRODUCT USED FOR UNKNOWN INDICATION
  16. PHENYTOIN [Concomitant]
     Indication: PRODUCT USED FOR UNKNOWN INDICATION
  17. NEOMERCAZOLE [Concomitant]
     Indication: PRODUCT USED FOR UNKNOWN INDICATION

REACTIONS (1)
  - Sepsis [Fatal]
